FAERS Safety Report 18984364 (Version 1)
Quarter: 2021Q1

REPORT INFORMATION
  Report Type: Spontaneous
  Country: US (occurrence: US)
  Receive Date: 20210308
  Receipt Date: 20210308
  Transmission Date: 20210420
  Serious: No
  Sender: FDA-Public Use
  Company Number: US-PFIZER INC-2021178807

PATIENT
  Sex: Female

DRUGS (1)
  1. EUCRISA [Suspect]
     Active Substance: CRISABOROLE
     Indication: ECZEMA
     Dosage: UNK

REACTIONS (6)
  - Skin lesion [Unknown]
  - Dry skin [Unknown]
  - Erythema [Unknown]
  - Discomfort [Unknown]
  - Pruritus [Unknown]
  - Application site pain [Unknown]
